FAERS Safety Report 16613617 (Version 11)
Quarter: 2022Q3

REPORT INFORMATION
  Report Type: Other
  Country: US (occurrence: None)
  Receive Date: 20190723
  Receipt Date: 20220802
  Transmission Date: 20221027
  Serious: Yes (Hospitalization, Other)
  Sender: FDA-Public Use
  Company Number: US-ROCHE-2352534

PATIENT
  Sex: Male
  Weight: 118.04 kg

DRUGS (21)
  1. OCREVUS [Suspect]
     Active Substance: OCRELIZUMAB
     Indication: Primary progressive multiple sclerosis
     Dosage: 12/APR/2018, 12/OCT/2018, 19/APR/2019, 07/SEP/2019, 25/OCT/2019?14/SEP/2017: 300 MG DAY 1 AND DAY 14
     Route: 042
     Dates: start: 20170914, end: 20171005
  2. OCREVUS [Suspect]
     Active Substance: OCRELIZUMAB
     Dosage: MOST RECENT DOSES OF OCRELIZUMAB: 12/OCT/2018, 19/APR/2019, 07/SEP/2019, 25/OCT/2019, ?//2017 ONCE I
     Route: 042
     Dates: start: 20180412
  3. OCREVUS [Suspect]
     Active Substance: OCRELIZUMAB
     Dosage: /MAR/2021
     Route: 042
     Dates: end: 202103
  4. OCREVUS [Suspect]
     Active Substance: OCRELIZUMAB
     Dosage: ONCE IN 6 MONTH?PATIENT LAST DATE OF TREATMENT: 30/MAR/2021, DATE OF NEXT INFUSION: /SEP/2021
     Route: 042
  5. OCREVUS [Suspect]
     Active Substance: OCRELIZUMAB
     Route: 042
     Dates: start: 2017
  6. OCREVUS [Suspect]
     Active Substance: OCRELIZUMAB
     Route: 042
     Dates: start: 2019
  7. RITUXAN [Suspect]
     Active Substance: RITUXIMAB
     Indication: Primary progressive multiple sclerosis
     Route: 041
     Dates: start: 20120921, end: 20170321
  8. RITUXAN [Suspect]
     Active Substance: RITUXIMAB
     Route: 042
     Dates: start: 2006, end: 2017
  9. RITUXAN [Suspect]
     Active Substance: RITUXIMAB
     Route: 042
     Dates: start: 2012, end: 2017
  10. RITUXAN [Suspect]
     Active Substance: RITUXIMAB
     Route: 042
     Dates: start: 2006, end: 2019
  11. TIZANIDINE [Concomitant]
     Active Substance: TIZANIDINE
     Indication: Muscle spasms
     Route: 048
  12. AMANTADINE [Concomitant]
     Active Substance: AMANTADINE
     Route: 048
     Dates: start: 2006
  13. ATORVASTATIN [Concomitant]
     Active Substance: ATORVASTATIN
     Indication: Blood cholesterol increased
     Route: 048
  14. BIOTIN [Concomitant]
     Active Substance: BIOTIN
     Route: 048
  15. DOXYCYCLINE HYCLATE [Concomitant]
     Active Substance: DOXYCYCLINE HYCLATE
     Indication: Urinary tract infection
     Dosage: 2 TIMES A DAY FOR 28 DAYS ; ONGOING YES
     Route: 048
     Dates: start: 20200610
  16. GABAPENTIN [Concomitant]
     Active Substance: GABAPENTIN
     Route: 048
     Dates: start: 2018
  17. TRAZODONE [Concomitant]
     Active Substance: TRAZODONE HYDROCHLORIDE
     Route: 048
     Dates: start: 2016
  18. VITAMIN C [Concomitant]
     Active Substance: ASCORBIC ACID
     Route: 048
  19. CRANBERRY [Concomitant]
     Active Substance: CRANBERRY
     Route: 048
  20. GLIPIZIDE [Concomitant]
     Active Substance: GLIPIZIDE
     Indication: Diabetes mellitus
     Route: 048
     Dates: start: 2021
  21. CEPHALEX [Concomitant]
     Indication: Urinary tract infection
     Route: 048
     Dates: start: 2022

REACTIONS (23)
  - Infection [Unknown]
  - Chills [Unknown]
  - Furuncle [Not Recovered/Not Resolved]
  - Muscular weakness [Recovered/Resolved]
  - Swelling [Unknown]
  - Decubitus ulcer [Recovered/Resolved]
  - Staphylococcal infection [Recovered/Resolved]
  - Escherichia infection [Not Recovered/Not Resolved]
  - Off label use [Unknown]
  - Pyrexia [Recovered/Resolved]
  - Thinking abnormal [Recovered/Resolved]
  - Mobility decreased [Not Recovered/Not Resolved]
  - Sleep apnoea syndrome [Not Recovered/Not Resolved]
  - Urinary tract infection [Not Recovered/Not Resolved]
  - Multiple sclerosis [Not Recovered/Not Resolved]
  - Dysstasia [Not Recovered/Not Resolved]
  - Muscular weakness [Not Recovered/Not Resolved]
  - Muscle spasms [Not Recovered/Not Resolved]
  - Gait inability [Not Recovered/Not Resolved]
  - Muscular weakness [Not Recovered/Not Resolved]
  - Body height decreased [Not Recovered/Not Resolved]
  - Urinary tract infection [Not Recovered/Not Resolved]
  - Hypertension [Not Recovered/Not Resolved]

NARRATIVE: CASE EVENT DATE: 20140101
